FAERS Safety Report 9365636 (Version 1)
Quarter: 2013Q2

REPORT INFORMATION
  Report Type: Spontaneous
  Country: US (occurrence: None)
  Receive Date: 20130624
  Receipt Date: 20130624
  Transmission Date: 20140414
  Serious: Yes (Other)
  Sender: FDA-Public Use
  Company Number: None

PATIENT
  Age: 22 Year
  Sex: Male

DRUGS (1)
  1. TECFIDERA [Suspect]
     Indication: MULTIPLE SCLEROSIS
     Dosage: 120 MG X 7 DAY THEN 240 MG
     Route: 048
     Dates: start: 20130611, end: 20130615

REACTIONS (5)
  - Drug hypersensitivity [None]
  - Eye swelling [None]
  - Lip swelling [None]
  - Dyspnoea [None]
  - Urticaria [None]
